FAERS Safety Report 6438047-6 (Version None)
Quarter: 2009Q4

REPORT INFORMATION
  Report Type: 
  Country: None (occurrence: None)
  Receive Date: 20091112
  Receipt Date: 20091102
  Transmission Date: 20100525
  Serious: Yes (Life-Threatening, Hospitalization, Other)
  Sender: FDA-Public Use
  Company Number: FR-ABBOTT-09P-056-0606185-00

PATIENT
  Sex: Female

DRUGS (7)
  1. KALETRA [Interacting]
     Indication: HIV INFECTION
     Dosage: 200 MG / 50 MG
     Route: 048
     Dates: start: 20080715
  2. TRUVADA [Interacting]
     Indication: HIV INFECTION
     Dates: start: 20090708, end: 20090820
  3. BACTRIM [Suspect]
     Indication: DRUG USE FOR UNKNOWN INDICATION
     Dates: start: 20080701, end: 20090820
  4. RISPERDAL [Concomitant]
     Indication: DRUG USE FOR UNKNOWN INDICATION
  5. LORAZEPAM [Concomitant]
     Indication: DRUG USE FOR UNKNOWN INDICATION
  6. VASTEN [Concomitant]
     Indication: DRUG USE FOR UNKNOWN INDICATION
  7. LIPANTHYL [Concomitant]
     Indication: DRUG USE FOR UNKNOWN INDICATION
     Dates: start: 20090829, end: 20091008

REACTIONS (3)
  - ASTHENIA [None]
  - NORMOCHROMIC NORMOCYTIC ANAEMIA [None]
  - RENAL FAILURE ACUTE [None]
